FAERS Safety Report 6871150-5 (Version None)
Quarter: 2010Q3

REPORT INFORMATION
  Report Type: 
  Country: None (occurrence: None)
  Receive Date: 20100723
  Receipt Date: 20100715
  Transmission Date: 20110219
  Serious: Yes (Hospitalization)
  Sender: FDA-Public Use
  Company Number: US-ROCHE-699654

PATIENT
  Sex: Male

DRUGS (16)
  1. PEGASYS [Suspect]
     Indication: HEPATITIS C
     Dosage: FORM: PRE-FILLED SYRINGE
     Route: 058
     Dates: start: 20100404
  2. PEGASYS [Suspect]
     Dosage: WEEK 15 OF THERAPY
     Route: 058
     Dates: start: 20100425
  3. RIBAVIRIN [Suspect]
     Indication: HEPATITIS C
     Dosage: IN DIVIDED DOSES
     Route: 048
     Dates: start: 20100404
  4. RIBAVIRIN [Suspect]
     Dosage: WEEK 15 OF TREATMENT
     Route: 048
     Dates: start: 20100425
  5. ALDACTONE [Suspect]
     Indication: PRODUCT USED FOR UNKNOWN INDICATION
     Route: 065
  6. ALDACTONE [Suspect]
     Dosage: DOSE DECREASED
     Route: 065
  7. ALDACTONE [Suspect]
     Dosage: DOSE INCREASED.
     Route: 065
  8. METFORMIN HCL [Concomitant]
  9. AZOR [Concomitant]
  10. SPIRIVA [Concomitant]
  11. ASPIRIN [Concomitant]
  12. OMEPRAZOLE [Concomitant]
  13. FERROUS SULFATE TAB [Concomitant]
  14. COLACE [Concomitant]
  15. AMILORIDE HYDROCHLORIDE [Concomitant]
  16. ZETIA [Concomitant]

REACTIONS (11)
  - ARTHRALGIA [None]
  - ASCITES [None]
  - FATIGUE [None]
  - HAEMATEMESIS [None]
  - HAEMOGLOBIN DECREASED [None]
  - HYPONATRAEMIA [None]
  - INJECTION SITE RASH [None]
  - NAUSEA [None]
  - PAIN [None]
  - PLATELET COUNT DECREASED [None]
  - RASH MACULAR [None]
